FAERS Safety Report 20360965 (Version 1)
Quarter: 2022Q1

REPORT INFORMATION
  Report Type: Spontaneous
  Country: US (occurrence: US)
  Receive Date: 20220121
  Receipt Date: 20220121
  Transmission Date: 20220424
  Serious: No
  Sender: FDA-Public Use
  Company Number: US-GLENMARK PHARMACEUTICALS-2021GMK067865

PATIENT

DRUGS (4)
  1. NORETHINDRONE [Suspect]
     Active Substance: NORETHINDRONE
     Indication: Ovulation disorder
     Dosage: 0.35 MILLIGRAM, OD
     Route: 048
     Dates: start: 202005
  2. NORETHINDRONE [Suspect]
     Active Substance: NORETHINDRONE
     Indication: Heavy menstrual bleeding
  3. NORETHINDRONE [Suspect]
     Active Substance: NORETHINDRONE
     Indication: Ovarian cyst
  4. ARMOUR THYROID [Concomitant]
     Active Substance: THYROID, PORCINE
     Indication: Hypothyroidism
     Dosage: UNK UNK, OD
     Route: 048

REACTIONS (4)
  - Dysmenorrhoea [Recovered/Resolved]
  - Drug ineffective for unapproved indication [Unknown]
  - Intermenstrual bleeding [Recovered/Resolved]
  - Oligomenorrhoea [Unknown]

NARRATIVE: CASE EVENT DATE: 20200501
